FAERS Safety Report 16920080 (Version 1)
Quarter: 2019Q4

REPORT INFORMATION
  Report Type: Spontaneous
  Country: US (occurrence: US)
  Receive Date: 20190823
  Receipt Date: 20190823
  Transmission Date: 20200122
  Serious: No
  Sender: FDA-Public Use
  Company Number: None

PATIENT
  Age: 5 Year
  Sex: Female

DRUGS (1)
  1. VIGABATRIN. [Suspect]
     Active Substance: VIGABATRIN
     Indication: INFANTILE SPASMS
     Dosage: 100 MG,750 MG, 750 MG
     Route: 048
     Dates: start: 20190717

REACTIONS (5)
  - Seizure [None]
  - Product substitution issue [None]
  - Poor quality sleep [None]
  - Aggression [None]
  - Staring [None]

NARRATIVE: CASE EVENT DATE: 20190720
